FAERS Safety Report 16493334 (Version 2)
Quarter: 2019Q3

REPORT INFORMATION
  Report Type: Spontaneous
  Country: AU (occurrence: AU)
  Receive Date: 20190628
  Receipt Date: 20190705
  Transmission Date: 20191004
  Serious: Yes (Other)
  Sender: FDA-Public Use
  Company Number: AU-ROCHE-2345024

PATIENT
  Sex: Female
  Weight: 73.8 kg

DRUGS (6)
  1. AVASTIN [Suspect]
     Active Substance: BEVACIZUMAB
     Indication: OFF LABEL USE
  2. AVASTIN [Suspect]
     Active Substance: BEVACIZUMAB
     Indication: CERVIX CANCER METASTATIC
     Route: 065
  3. CARBOPLATIN. [Suspect]
     Active Substance: CARBOPLATIN
     Indication: CERVIX CANCER METASTATIC
     Route: 065
  4. CARBOPLATIN. [Suspect]
     Active Substance: CARBOPLATIN
     Indication: OFF LABEL USE
  5. PACLITAXEL. [Suspect]
     Active Substance: PACLITAXEL
     Indication: CERVIX CANCER METASTATIC
     Route: 065
  6. PACLITAXEL. [Suspect]
     Active Substance: PACLITAXEL
     Indication: OFF LABEL USE

REACTIONS (4)
  - Neuropathy peripheral [Unknown]
  - Bone marrow toxicity [Unknown]
  - Off label use [Unknown]
  - Product use issue [Unknown]
